FAERS Safety Report 25956537 (Version 1)
Quarter: 2025Q4

REPORT INFORMATION
  Report Type: Spontaneous
  Country: US (occurrence: US)
  Receive Date: 20251024
  Receipt Date: 20251024
  Transmission Date: 20260118
  Serious: Yes (Other)
  Sender: BRISTOL-MYERS SQUIBB COMPANY
  Company Number: US-BRISTOL-MYERS SQUIBB COMPANY-2025-143840

PATIENT
  Age: 49 Year
  Sex: Female
  Weight: 72.57 kg

DRUGS (3)
  1. COBENFY [Suspect]
     Active Substance: TROSPIUM CHLORIDE\XANOMELINE
     Indication: Bipolar disorder
     Dosage: DOSE : 50 MG/ 20 MG
     Dates: start: 2025, end: 2025
  2. COBENFY [Suspect]
     Active Substance: TROSPIUM CHLORIDE\XANOMELINE
     Indication: Mania
  3. OLANZAPINE [Concomitant]
     Active Substance: OLANZAPINE
     Indication: Product used for unknown indication

REACTIONS (4)
  - Mania [Unknown]
  - Agitation [Unknown]
  - Sleep disorder [Unknown]
  - Off label use [Unknown]
